FAERS Safety Report 8180331-2 (Version None)
Quarter: 2012Q1

REPORT INFORMATION
  Report Type: 
  Country: None (occurrence: None)
  Receive Date: 20120229
  Receipt Date: 20120220
  Transmission Date: 20120608
  Serious: Yes (Other)
  Sender: FDA-Public Use
  Company Number: 2011SP037532

PATIENT
  Age: 46 Year
  Sex: Male

DRUGS (9)
  1. DESLORATADINE [Suspect]
     Indication: PRODUCT USED FOR UNKNOWN INDICATION
  2. VANDETANIB [Suspect]
     Indication: THYROID CANCER
     Dosage: 300 MG;PO 200 MG;PO 100 MG;QD;PO 200 MG;QD;PO
     Route: 048
     Dates: start: 20110411, end: 20110713
  3. VANDETANIB [Suspect]
     Indication: THYROID CANCER
     Dosage: 300 MG;PO 200 MG;PO 100 MG;QD;PO 200 MG;QD;PO
     Route: 048
     Dates: start: 20110824
  4. VANDETANIB [Suspect]
     Indication: THYROID CANCER
     Dosage: 300 MG;PO 200 MG;PO 100 MG;QD;PO 200 MG;QD;PO
     Route: 048
     Dates: start: 20110805, end: 20110824
  5. VANDETANIB [Suspect]
     Indication: THYROID CANCER
     Dosage: 300 MG;PO 200 MG;PO 100 MG;QD;PO 200 MG;QD;PO
     Route: 048
     Dates: start: 20110713, end: 20110720
  6. NEXIUM [Suspect]
     Indication: PRODUCT USED FOR UNKNOWN INDICATION
  7. PREVISCAN (FLUINDIONE) [Suspect]
     Indication: PRODUCT USED FOR UNKNOWN INDICATION
  8. LEVOTHYROXINE SODIUM [Suspect]
     Indication: PRODUCT USED FOR UNKNOWN INDICATION
  9. CACIT D3 (LEKOVIT CA) [Suspect]
     Indication: PRODUCT USED FOR UNKNOWN INDICATION

REACTIONS (4)
  - ELECTROCARDIOGRAM QT PROLONGED [None]
  - ASPARTATE AMINOTRANSFERASE INCREASED [None]
  - BLOOD PRESSURE INCREASED [None]
  - ALANINE AMINOTRANSFERASE INCREASED [None]
